FAERS Safety Report 14947969 (Version 1)
Quarter: 2018Q2

REPORT INFORMATION
  Report Type: Spontaneous
  Country: US (occurrence: US)
  Receive Date: 20180529
  Receipt Date: 20180529
  Transmission Date: 20180711
  Serious: Yes (Other)
  Sender: FDA-Public Use
  Company Number: US-BAYER-2018-097265

PATIENT
  Age: 38 Year
  Sex: Female

DRUGS (1)
  1. MIRENA [Suspect]
     Active Substance: LEVONORGESTREL
     Indication: MENORRHAGIA
     Dosage: 20 MCG/24HR, CONT
     Route: 015
     Dates: start: 20180430, end: 20180518

REACTIONS (9)
  - Intentional medical device removal by patient [None]
  - Patient dissatisfaction with treatment [None]
  - Suicidal ideation [None]
  - Feeling of despair [None]
  - Crying [None]
  - Depression [None]
  - Emotional distress [None]
  - Anxiety [None]
  - Panic reaction [None]

NARRATIVE: CASE EVENT DATE: 20180430
